FAERS Safety Report 17600565 (Version 13)
Quarter: 2022Q1

REPORT INFORMATION
  Report Type: Report from Study
  Country: DE (occurrence: DE)
  Receive Date: 20200330
  Receipt Date: 20220221
  Transmission Date: 20220423
  Serious: Yes (Hospitalization)
  Sender: FDA-Public Use
  Company Number: NVSC2020DE085022

PATIENT
  Age: 49 Year
  Sex: Female
  Weight: 72 kg

DRUGS (10)
  1. TNO-155 MONOSUCCINATE HEMIHYDRATE [Suspect]
     Active Substance: TNO-155 MONOSUCCINATE HEMIHYDRATE
     Indication: Neoplasm malignant
     Dosage: 40 MG, QD
     Route: 048
     Dates: start: 20200312, end: 20200324
  2. RIBOCICLIB [Suspect]
     Active Substance: RIBOCICLIB
     Indication: Neoplasm malignant
     Dosage: 200 MG, QD
     Route: 048
     Dates: start: 20200312, end: 20200324
  3. ZOPICLONE [Concomitant]
     Active Substance: ZOPICLONE
     Indication: Insomnia
     Dosage: UNK
     Route: 065
     Dates: start: 2017
  4. PANTOPRAZOLE SODIUM [Concomitant]
     Active Substance: PANTOPRAZOLE SODIUM
     Indication: Gastritis prophylaxis
     Dosage: UNK
     Route: 065
     Dates: start: 201506
  5. NEBIVOLOL [Concomitant]
     Active Substance: NEBIVOLOL
     Indication: Tachycardia
     Dosage: UNK
     Route: 065
     Dates: start: 2015
  6. LEVOTHYROXINE SODIUM [Concomitant]
     Active Substance: LEVOTHYROXINE SODIUM
     Indication: Hypothyroidism
     Dosage: UNK
     Route: 065
     Dates: start: 201811
  7. NALOXONE HYDROCHLORIDE\TILIDINE HYDROCHLORIDE [Concomitant]
     Active Substance: NALOXONE HYDROCHLORIDE\TILIDINE HYDROCHLORIDE
     Indication: Back pain
     Dosage: UNK
     Route: 065
     Dates: start: 202002
  8. IBUPROFEN [Concomitant]
     Active Substance: IBUPROFEN
     Indication: Back pain
     Dosage: UNK
     Route: 065
     Dates: start: 202002
  9. METAMIZOLE [Concomitant]
     Active Substance: METAMIZOLE
     Indication: Back pain
     Dosage: UNK
     Route: 065
     Dates: start: 20200312
  10. FOSTER [Concomitant]
     Active Substance: BECLOMETHASONE\FORMOTEROL
     Indication: Cough
     Dosage: UNK
     Route: 065
     Dates: start: 202002

REACTIONS (4)
  - Pneumonitis [Recovered/Resolved with Sequelae]
  - Pleural effusion [Recovered/Resolved]
  - Dyspnoea [Recovered/Resolved with Sequelae]
  - Pneumothorax [Recovered/Resolved]

NARRATIVE: CASE EVENT DATE: 20200324
